FAERS Safety Report 5837475-7 (Version None)
Quarter: 2008Q4

REPORT INFORMATION
  Report Type: 
  Country: None (occurrence: None)
  Receive Date: 20080807
  Receipt Date: 20080804
  Transmission Date: 20090506
  Serious: Yes (Hospitalization)
  Sender: FDA-Public Use
  Company Number: US-ELI_LILLY_AND_COMPANY-US200808000574

PATIENT
  Sex: Female
  Weight: 90.249 kg

DRUGS (2)
  1. BYETTA [Suspect]
     Indication: TYPE 2 DIABETES MELLITUS
     Dosage: 5 UG, 2/D
     Route: 058
     Dates: start: 20080201, end: 20080401
  2. BYETTA [Suspect]
     Dosage: 10 UG, 2/D
     Route: 058
     Dates: start: 20080401

REACTIONS (7)
  - BENIGN NEOPLASM OF EYE [None]
  - BLOOD GLUCOSE INCREASED [None]
  - EYE PAIN [None]
  - LACRIMATION INCREASED [None]
  - NERVOUSNESS [None]
  - STRESS [None]
  - TREMOR [None]
